FAERS Safety Report 6964088-6 (Version None)
Quarter: 2010Q3

REPORT INFORMATION
  Report Type: 
  Country: None (occurrence: None)
  Receive Date: 20100831
  Receipt Date: 20061004
  Transmission Date: 20110219
  Serious: Yes (Hospitalization)
  Sender: FDA-Public Use
  Company Number: 2006SP004099

PATIENT
  Age: 51 Year
  Sex: Female
  Weight: 69 kg

DRUGS (2)
  1. TEMODAR [Suspect]
     Indication: MALIGNANT MELANOMA
     Dosage: 350 MG;QD;PO
     Route: 048
     Dates: start: 20060714, end: 20060718
  2. TEMODAR [Suspect]
     Indication: MALIGNANT MELANOMA
     Dosage: 350 MG;QD;PO
     Route: 048
     Dates: start: 20060718, end: 20060822

REACTIONS (2)
  - HAEMATURIA [None]
  - PLATELET COUNT DECREASED [None]
